FAERS Safety Report 7141121-2 (Version None)
Quarter: 2010Q4

REPORT INFORMATION
  Report Type: 
  Country: None (occurrence: None)
  Receive Date: 20101202
  Receipt Date: 20101202
  Transmission Date: 20110411
  Serious: Yes (Hospitalization, Other)
  Sender: FDA-Public Use
  Company Number: None

PATIENT
  Sex: Female
  Weight: 97.5234 kg

DRUGS (1)
  1. MULTAQ [Suspect]
     Indication: ARRHYTHMIA
     Dosage: 1 TABLET EVERY 12 HR. BY MOUTH
     Route: 048
     Dates: start: 20100901

REACTIONS (4)
  - FLUID RETENTION [None]
  - OEDEMA PERIPHERAL [None]
  - SEDATION [None]
  - SWELLING [None]
